FAERS Safety Report 8955300 (Version 1)
Quarter: 2012Q4

REPORT INFORMATION
  Report Type: Report from Study
  Country: DZ (occurrence: DZ)
  Receive Date: 20121207
  Receipt Date: 20121207
  Transmission Date: 20130627
  Serious: Yes (Other)
  Sender: FDA-Public Use
  Company Number: DZ-ROCHE-1165877

PATIENT
  Age: 54 Year

DRUGS (5)
  1. RITUXIMAB [Suspect]
     Indication: NON-HODGKIN^S LYMPHOMA
     Route: 065
  2. CYCLOPHOSPHAMID [Concomitant]
     Indication: NON-HODGKIN^S LYMPHOMA
     Route: 065
  3. ADRIAMYCIN [Concomitant]
     Indication: NON-HODGKIN^S LYMPHOMA
     Route: 065
  4. ONCOVIN [Concomitant]
     Indication: NON-HODGKIN^S LYMPHOMA
     Route: 065
  5. PREDNISONE [Concomitant]
     Indication: NON-HODGKIN^S LYMPHOMA
     Route: 065

REACTIONS (2)
  - Constipation [Unknown]
  - Nausea [Unknown]
